FAERS Safety Report 24675122 (Version 1)
Quarter: 2024Q4

REPORT INFORMATION
  Report Type: Spontaneous
  Country: SA (occurrence: SA)
  Receive Date: 20241128
  Receipt Date: 20241128
  Transmission Date: 20250115
  Serious: Yes (Hospitalization, Other)
  Sender: ACCORD
  Company Number: SA-Accord-457667

PATIENT
  Age: 32 Year
  Sex: Male

DRUGS (10)
  1. AMPHETAMINE [Suspect]
     Active Substance: AMPHETAMINE
     Indication: Attention deficit hyperactivity disorder
  2. DEXTROAMPHETAMINE [Suspect]
     Active Substance: DEXTROAMPHETAMINE
     Indication: Attention deficit hyperactivity disorder
  3. ASPIRIN [Concomitant]
     Active Substance: ASPIRIN
     Indication: Cardiac failure acute
     Dosage: 81 MG PO OD
     Route: 048
  4. ATORVASTATIN [Concomitant]
     Active Substance: ATORVASTATIN
     Indication: Cardiac failure acute
     Dosage: 20 MG PO OD
     Route: 048
  5. CARVEDILOL [Concomitant]
     Active Substance: CARVEDILOL
     Indication: Cardiac failure acute
     Dosage: 6.25 MG PO BID
     Route: 048
  6. ENOXAPARIN [Concomitant]
     Active Substance: ENOXAPARIN
     Indication: Cardiac failure acute
     Dosage: 40 MG SC OD
     Route: 058
  7. FUROSEMIDE [Concomitant]
     Active Substance: FUROSEMIDE
     Indication: Cardiac failure acute
     Dosage: 40 MG IV BID
  8. OMEPRAZOLE [Concomitant]
     Active Substance: OMEPRAZOLE
     Indication: Cardiac failure acute
     Dosage: 40 MG IV OD
  9. SACUBITRIL\VALSARTAN [Concomitant]
     Active Substance: SACUBITRIL\VALSARTAN
     Indication: Cardiac failure acute
  10. SPIRONOLACTONE [Concomitant]
     Active Substance: SPIRONOLACTONE
     Indication: Cardiac failure acute
     Dosage: 25 MG PO OD
     Route: 048

REACTIONS (2)
  - Cardiomyopathy [Recovering/Resolving]
  - Heart failure with reduced ejection fraction [Recovering/Resolving]
